FAERS Safety Report 7463848-5 (Version None)
Quarter: 2011Q2

REPORT INFORMATION
  Report Type: 
  Country: None (occurrence: None)
  Receive Date: 20110506
  Receipt Date: 20110502
  Transmission Date: 20111010
  Serious: Yes (Other)
  Sender: FDA-Public Use
  Company Number: BR-PFIZER INC-2010107699

PATIENT
  Age: 57 Year
  Sex: Male
  Weight: 90 kg

DRUGS (4)
  1. ALPRAZOLAM [Suspect]
     Dosage: 0.5 MG, 1X/DAY
     Dates: start: 20110401
  2. AMLODIPINE BESILATE [Concomitant]
     Indication: HYPERTENSION
     Dosage: 5 MG
  3. ALPRAZOLAM [Suspect]
     Indication: PANIC DISORDER
     Dosage: 1 MG, 1X/DAY, IN THE EVENING
     Route: 048
     Dates: start: 20100601
  4. DIOVAN [Concomitant]
     Indication: HYPERTENSION
     Dosage: 320 MG

REACTIONS (9)
  - POLLAKIURIA [None]
  - POOR QUALITY SLEEP [None]
  - WEIGHT DECREASED [None]
  - ANXIETY [None]
  - EJACULATION DISORDER [None]
  - BLOOD PRESSURE INCREASED [None]
  - NIGHTMARE [None]
  - FEELING ABNORMAL [None]
  - ABDOMINAL DISCOMFORT [None]
